FAERS Safety Report 7084560-0 (Version None)
Quarter: 2010Q4

REPORT INFORMATION
  Report Type: 
  Country: None (occurrence: None)
  Receive Date: 20101104
  Receipt Date: 20101021
  Transmission Date: 20110411
  Serious: Yes (Hospitalization, Other)
  Sender: FDA-Public Use
  Company Number: US-AMGEN-USASP2010000891

PATIENT

DRUGS (16)
  1. NPLATE [Suspect]
     Indication: IDIOPATHIC THROMBOCYTOPENIC PURPURA
     Dosage: UNK
     Dates: start: 20100927
  2. RITUXIMAB [Concomitant]
     Dosage: UNK
     Dates: start: 20101001, end: 20101022
  3. PREDNISONE [Concomitant]
  4. CYCLOSPORINE [Concomitant]
     Dosage: UNK
     Dates: start: 20100907, end: 20101006
  5. IMMU-G [Concomitant]
     Dosage: UNK
     Route: 042
     Dates: start: 20100823, end: 20100827
  6. ACYCLOVIR [Concomitant]
  7. CIPRO                              /00042702/ [Concomitant]
     Dates: start: 20101001, end: 20101001
  8. FLUCONAZOLE [Concomitant]
  9. PENTAMIDINE                        /00187102/ [Concomitant]
  10. SYNTHROID [Concomitant]
  11. NORVASC [Concomitant]
  12. AMICAR [Concomitant]
  13. ATOVAQUONE [Concomitant]
  14. POSACONAZOLE [Concomitant]
  15. MICAFUNGIN [Concomitant]
  16. DANAZOL [Concomitant]
     Dosage: UNK
     Dates: start: 20100927

REACTIONS (2)
  - DRUG INEFFECTIVE [None]
  - IDIOPATHIC THROMBOCYTOPENIC PURPURA [None]
